FAERS Safety Report 4382103-3 (Version None)
Quarter: 2004Q2

REPORT INFORMATION
  Report Type: 
  Country: None (occurrence: None)
  Receive Date: 20040615
  Receipt Date: 20040602
  Transmission Date: 20050107
  Serious: Yes (Hospitalization, Congenital Anomaly)
  Sender: FDA-Public Use
  Company Number: 2004036961

PATIENT
  Sex: Male

DRUGS (5)
  1. NITROSTAT [Suspect]
     Indication: CHEST PAIN
     Dosage: (0.4 MG, AS NEEDED), SUBLINGUAL
     Route: 060
     Dates: end: 20040101
  2. NITROGLYCERIN [Suspect]
     Indication: CHEST PAIN
     Dosage: (0.4 MG, AS NEEDED) SUBLINGUAL
     Route: 060
  3. ISOSORBIDE DINITRATE [Concomitant]
  4. METOPROLOL SUCCINATE [Concomitant]
  5. CAPTOPRIL [Concomitant]

REACTIONS (5)
  - BURNING SENSATION [None]
  - CHEST PAIN [None]
  - DRUG INEFFECTIVE [None]
  - PAIN [None]
  - PHARMACEUTICAL PRODUCT COMPLAINT [None]
